FAERS Safety Report 9489454 (Version 2)
Quarter: 2015Q2

REPORT INFORMATION
  Report Type: Spontaneous
  Country: GB (occurrence: GB)
  Receive Date: 20130829
  Receipt Date: 20150424
  Transmission Date: 20150821
  Serious: Yes (Other)
  Sender: FDA-Public Use
  Company Number: PHHY2013GB091327

PATIENT
  Age: 55 Year
  Sex: Female

DRUGS (1)
  1. VENLAFAXINE [Suspect]
     Active Substance: VENLAFAXINE HYDROCHLORIDE
     Indication: FLUSHING
     Route: 065

REACTIONS (13)
  - Subarachnoid haemorrhage [Recovering/Resolving]
  - Somnolence [Recovering/Resolving]
  - Generalised tonic-clonic seizure [Recovering/Resolving]
  - Aphasia [Recovering/Resolving]
  - Hypoaesthesia [Recovering/Resolving]
  - Cerebral haemorrhage [Recovering/Resolving]
  - Hemiparesis [Recovering/Resolving]
  - Reversible cerebral vasoconstriction syndrome [Recovering/Resolving]
  - Headache [Recovering/Resolving]
  - Disorientation [Recovering/Resolving]
  - Leukoencephalopathy [Recovering/Resolving]
  - Anterograde amnesia [Recovering/Resolving]
  - Balance disorder [Recovering/Resolving]
